FAERS Safety Report 5495336-X (Version None)
Quarter: 2007Q4

REPORT INFORMATION
  Report Type: 
  Country: None (occurrence: None)
  Receive Date: 20071023
  Receipt Date: 20071009
  Transmission Date: 20080405
  Serious: Yes (Hospitalization)
  Sender: FDA-Public Use
  Company Number: WAES 0709USA04109

PATIENT
  Age: 64 Year
  Sex: Male
  Weight: 85.7298 kg

DRUGS (9)
  1. DECADRON [Suspect]
     Dosage: PO
     Route: 048
  2. ARANESP [Suspect]
     Indication: ANAEMIA
     Dosage: 500 MICROGM/SC
     Route: 058
     Dates: start: 20070813, end: 20070813
  3. GRANISETRON  HCL [Suspect]
  4. OXALIPLATIN [Suspect]
  5. CAPECITABINE UNK [Suspect]
     Dates: end: 20070820
  6. AVASTIN [Concomitant]
  7. ZIAC [Concomitant]
  8. ASPIRIN [Concomitant]
  9. IRON (UNSPECIFIED) [Concomitant]

REACTIONS (2)
  - DEHYDRATION [None]
  - ENTEROCOLITIS [None]
